FAERS Safety Report 19388050 (Version 2)
Quarter: 2021Q3

REPORT INFORMATION
  Report Type: Report from Study
  Country: CA (occurrence: CA)
  Receive Date: 20210607
  Receipt Date: 20210826
  Transmission Date: 20211014
  Serious: Yes (Other)
  Sender: FDA-Public Use
  Company Number: CA-JNJFOC-20201038399

PATIENT
  Age: 43 Year
  Sex: Female
  Weight: 110 kg

DRUGS (1)
  1. REMICADE [Suspect]
     Active Substance: INFLIXIMAB
     Indication: PSORIASIS
     Route: 042
     Dates: start: 20100915

REACTIONS (11)
  - Psoriatic arthropathy [Unknown]
  - Oral herpes [Unknown]
  - Off label use [Unknown]
  - Bite [Unknown]
  - Oral infection [Recovered/Resolved]
  - Depression [Unknown]
  - Visual impairment [Unknown]
  - Intervertebral disc degeneration [Unknown]
  - Psoriasis [Not Recovered/Not Resolved]
  - Stress [Unknown]
  - Incorrect dose administered [Unknown]

NARRATIVE: CASE EVENT DATE: 202009
